FAERS Safety Report 21886519 (Version 1)
Quarter: 2023Q1

REPORT INFORMATION
  Report Type: Spontaneous
  Country: CN (occurrence: CN)
  Receive Date: 20230119
  Receipt Date: 20230119
  Transmission Date: 20230417
  Serious: Yes (Other)
  Sender: FDA-Public Use
  Company Number: CN-009507513-2301CHN005731

PATIENT
  Sex: Male

DRUGS (5)
  1. CILASTATIN SODIUM\IMIPENEM [Suspect]
     Active Substance: CILASTATIN SODIUM\IMIPENEM
     Indication: Anti-infective therapy
     Dosage: 0.5 G, Q8H
     Route: 041
     Dates: start: 20221228, end: 20230101
  2. MOXIFLOXACIN HYDROCHLORIDE [Suspect]
     Active Substance: MOXIFLOXACIN HYDROCHLORIDE
     Indication: Anti-infective therapy
     Dosage: 0.4 G, QD
     Route: 041
     Dates: start: 20221228, end: 20230101
  3. METHYLPREDNISOLONE SODIUM SUCCINATE [Suspect]
     Active Substance: METHYLPREDNISOLONE SODIUM SUCCINATE
     Indication: Antiinflammatory therapy
     Dosage: 40 MG, QD
     Route: 041
     Dates: start: 20221231, end: 20230101
  4. SODIUM CHLORIDE [Concomitant]
     Active Substance: SODIUM CHLORIDE
     Indication: Medication dilution
     Dosage: 100 ML, Q8H
     Route: 041
     Dates: start: 20221228, end: 20230101
  5. SODIUM CHLORIDE [Concomitant]
     Active Substance: SODIUM CHLORIDE
     Dosage: 20 ML, QD
     Route: 041
     Dates: start: 20221231, end: 20230101

REACTIONS (11)
  - Disorganised speech [Recovering/Resolving]
  - Abnormal behaviour [Recovering/Resolving]
  - Speech disorder [Recovering/Resolving]
  - Irritability [Recovering/Resolving]
  - Suicide threat [Recovering/Resolving]
  - Poor quality sleep [Recovering/Resolving]
  - Eating disorder [Recovering/Resolving]
  - Mental disorder [Recovering/Resolving]
  - Exposure to noise [Unknown]
  - Breath sounds abnormal [Unknown]
  - Rales [Unknown]

NARRATIVE: CASE EVENT DATE: 20230101
